FAERS Safety Report 6181336-3 (Version None)
Quarter: 2009Q2

REPORT INFORMATION
  Report Type: 
  Country: None (occurrence: None)
  Receive Date: 20090506
  Receipt Date: 20090504
  Transmission Date: 20091009
  Serious: Yes (Other)
  Sender: FDA-Public Use
  Company Number: US-MERCK-0904USA02290

PATIENT
  Age: 59 Year
  Sex: Female
  Weight: 85 kg

DRUGS (3)
  1. SINGULAIR [Suspect]
     Indication: SEASONAL ALLERGY
     Route: 048
     Dates: start: 20090406, end: 20090401
  2. ASTELIN [Concomitant]
     Indication: HYPERSENSITIVITY
     Route: 065
  3. NASONEX [Concomitant]
     Indication: HYPERSENSITIVITY
     Route: 065

REACTIONS (3)
  - COUGH [None]
  - LACRIMATION INCREASED [None]
  - MUCOUS MEMBRANE DISORDER [None]
